FAERS Safety Report 11335841 (Version 2)
Quarter: 2015Q3

REPORT INFORMATION
  Report Type: Report from Study
  Country: US (occurrence: US)
  Receive Date: 20150804
  Receipt Date: 20150902
  Transmission Date: 20151125
  Serious: Yes (Other)
  Sender: FDA-Public Use
  Company Number: US-BAYER-2015-366824

PATIENT
  Age: 67 Year
  Sex: Female

DRUGS (1)
  1. STIVARGA [Suspect]
     Active Substance: REGORAFENIB
     Indication: COLON CANCER
     Dosage: 120 MG, DAILY
     Route: 048
     Dates: start: 20150603

REACTIONS (6)
  - Palmar erythema [None]
  - Rash [None]
  - Pancreatitis [None]
  - Erythema [None]
  - Dry skin [None]
  - Urticaria [None]

NARRATIVE: CASE EVENT DATE: 20150724
